FAERS Safety Report 6175436-1 (Version None)
Quarter: 2009Q2

REPORT INFORMATION
  Report Type: 
  Country: None (occurrence: None)
  Receive Date: 20090429
  Receipt Date: 20090420
  Transmission Date: 20091009
  Serious: Yes (Death)
  Sender: FDA-Public Use
  Company Number: JPI-P-007002

PATIENT
  Age: 75 Year
  Sex: Male

DRUGS (4)
  1. XYREM [Suspect]
     Indication: CATAPLEXY
     Dosage: 7.5 GM, (3.75 GM, 2 IN 1 D), ORAL, 5.5 GM (2.75 GM, 2 IN 1 D), ORAL,
     Route: 048
     Dates: start: 20081219, end: 20090401
  2. XYREM [Suspect]
     Indication: NARCOLEPSY
     Dosage: 7.5 GM, (3.75 GM, 2 IN 1 D), ORAL, 5.5 GM (2.75 GM, 2 IN 1 D), ORAL,
     Route: 048
     Dates: start: 20081219, end: 20090401
  3. XYREM [Suspect]
     Indication: CATAPLEXY
     Dosage: 7.5 GM, (3.75 GM, 2 IN 1 D), ORAL, 5.5 GM (2.75 GM, 2 IN 1 D), ORAL,
     Route: 048
     Dates: start: 20020917
  4. XYREM [Suspect]
     Indication: NARCOLEPSY
     Dosage: 7.5 GM, (3.75 GM, 2 IN 1 D), ORAL, 5.5 GM (2.75 GM, 2 IN 1 D), ORAL,
     Route: 048
     Dates: start: 20020917

REACTIONS (2)
  - LUNG NEOPLASM MALIGNANT [None]
  - METASTASES TO CENTRAL NERVOUS SYSTEM [None]
